FAERS Safety Report 16554000 (Version 1)
Quarter: 2019Q3

REPORT INFORMATION
  Report Type: Spontaneous
  Country: US (occurrence: US)
  Receive Date: 20190528
  Receipt Date: 20190528
  Transmission Date: 20191004
  Serious: Yes (Other)
  Sender: FDA-Public Use
  Company Number: None

PATIENT

DRUGS (1)
  1. NITROFURANTOIN MONO 100MG [Suspect]
     Active Substance: NITROFURANTOIN\NITROFURANTOIN MONOHYDRATE
     Indication: URINARY TRACT INFECTION
     Dosage: ?          QUANTITY:100 MG MILLIGRAM(S);?
     Route: 048
     Dates: start: 20190327, end: 20190402

REACTIONS (27)
  - Pleuritic pain [None]
  - Fatigue [None]
  - Pleural effusion [None]
  - Glomerular filtration rate decreased [None]
  - Urticaria [None]
  - Pulmonary oedema [None]
  - Haemoptysis [None]
  - Epistaxis [None]
  - Pain [None]
  - Blood creatinine increased [None]
  - Blood sodium decreased [None]
  - Bundle branch block left [None]
  - Pulmonary congestion [None]
  - Pyrexia [None]
  - Tremor [None]
  - Back pain [None]
  - Decreased appetite [None]
  - Headache [None]
  - Rash [None]
  - Ear discomfort [None]
  - Chills [None]
  - Blood glucose increased [None]
  - Thirst [None]
  - Vertigo [None]
  - Drug hypersensitivity [None]
  - Blood urea increased [None]
  - Atrial fibrillation [None]

NARRATIVE: CASE EVENT DATE: 20190405
